FAERS Safety Report 8605035-0 (Version None)
Quarter: 2012Q3

REPORT INFORMATION
  Report Type: 
  Country: None (occurrence: None)
  Receive Date: 20120820
  Receipt Date: 20120810
  Transmission Date: 20120928
  Serious: Yes (Hospitalization, Other)
  Sender: FDA-Public Use
  Company Number: US-BAYER-2012-037947

PATIENT
  Age: 20 Year
  Sex: Female
  Weight: 54 kg

DRUGS (4)
  1. VITAMIN TAB [Concomitant]
     Route: 048
  2. TYLENOL [Concomitant]
     Route: 048
  3. BREATHING MEDICATIONS [Concomitant]
     Route: 045
  4. YAZ [Suspect]
     Dosage: UNK
     Dates: start: 20100101

REACTIONS (10)
  - PULMONARY EMBOLISM [None]
  - PAINFUL RESPIRATION [None]
  - SCAR [None]
  - DYSPNOEA [None]
  - DEEP VEIN THROMBOSIS [None]
  - PULMONARY INFARCTION [None]
  - JOINT SWELLING [None]
  - PAIN [None]
  - INJURY [None]
  - RESPIRATORY FAILURE [None]
